FAERS Safety Report 17534915 (Version 3)
Quarter: 2020Q3

REPORT INFORMATION
  Report Type: Spontaneous
  Country: SE (occurrence: SE)
  Receive Date: 20200312
  Receipt Date: 20200804
  Transmission Date: 20201102
  Serious: Yes (Other)
  Sender: FDA-Public Use
  Company Number: SE-VERTEX PHARMACEUTICALS-2020-004579

PATIENT
  Age: 3 Year
  Sex: Male

DRUGS (13)
  1. MINIDERM 20 % [Concomitant]
  2. CREON 10,000 GASTRORESISTANT CAPSULE [Concomitant]
     Dosage: VID BEHOV CA 3?4 KAPSLAR F?RE M?LTIDER CA 20 ST/DAG OBS I CYSTISK FIBROS
  3. HYPERTONIC SALINE SOLUTION [Concomitant]
     Active Substance: SODIUM CHLORIDE
  4. FLUTIDE EVOHALER 125 MIKROGRAM/DOS INHALATIONSSPRAY, SUSPENSION [Concomitant]
     Dosage: 125 MIKROGRAM/DOS INHALATIONSSPRAY, SUSPENSION
  5. ORKAMBI [Suspect]
     Active Substance: IVACAFTOR\LUMACAFTOR
     Dosage: 150MG LUMACAFTOR/188MG IVACAFTOR
     Route: 048
     Dates: start: 20200109, end: 20200214
  6. PROPYLENE GLYCOL IN LOCOBASE CREAM APL 20% CREAM [Concomitant]
  7. AIROMIR 0.1 MG/DOSE INHALATION SPRAY, SUSPENSION [Concomitant]
     Dosage: 0.1 MG/DOSE INHALATION SPRAY, SUSPENSION
  8. EMLA 25 MG/25 MG MEDICAL BAND?AID [Concomitant]
     Dosage: 25 MG/25 MG MEDICAL BAND?AID
  9. BISOLVON 1.6 MG/ML ORAL SOLUTION [Concomitant]
  10. ORKAMBI [Suspect]
     Active Substance: IVACAFTOR\LUMACAFTOR
     Indication: CYSTIC FIBROSIS
     Dosage: 100/125 MG
     Route: 048
     Dates: start: 20200429, end: 20200618
  11. CLONIDINE APL 20 MICROGRAM/ML ORAL SOLUTION [Concomitant]
     Dosage: 3.5 ML L?SNING VID BEHOV.
  12. ACETYLCYSEINE MEDA 200 MG/ML NEBULIZER SOLUTION [Concomitant]
  13. LOCOID 0.1% CREAM [Concomitant]

REACTIONS (4)
  - Aspartate aminotransferase increased [Recovering/Resolving]
  - Transaminases increased [Unknown]
  - Alanine aminotransferase increased [Recovering/Resolving]
  - Gamma-glutamyltransferase increased [Recovering/Resolving]

NARRATIVE: CASE EVENT DATE: 20200214
